FAERS Safety Report 5979924-X (Version None)
Quarter: 2008Q4

REPORT INFORMATION
  Report Type: 
  Country: None (occurrence: None)
  Receive Date: 20081205
  Receipt Date: 20081203
  Transmission Date: 20090506
  Serious: Yes (Hospitalization)
  Sender: FDA-Public Use
  Company Number: BE-BRISTOL-MYERS SQUIBB COMPANY-14294102

PATIENT
  Age: 69 Year
  Sex: Female
  Weight: 70 kg

DRUGS (10)
  1. ABILIFY [Suspect]
     Indication: CONFUSIONAL STATE
     Dosage: 5MG FROM 03-09-2008
     Route: 048
     Dates: start: 20080723, end: 20080727
  2. ABILIFY [Suspect]
     Indication: PARANOIA
     Dosage: 5MG FROM 03-09-2008
     Route: 048
     Dates: start: 20080723, end: 20080727
  3. PROLOPA [Concomitant]
     Route: 048
  4. PROTHIADEN [Concomitant]
     Route: 048
  5. CAMCOLIT [Concomitant]
     Route: 048
  6. ZOCOR [Concomitant]
  7. GLUCOPHAGE [Concomitant]
  8. ZOMETA [Concomitant]
     Dosage: 1 DOSAGE FORM = 2.5(UNIT NOT SPECIFIED)
  9. LORMETAZEPAM [Concomitant]
  10. LITHIUM [Concomitant]

REACTIONS (5)
  - COMA [None]
  - DIABETES INSIPIDUS [None]
  - FLUID INTAKE REDUCED [None]
  - RENAL FAILURE [None]
  - SEDATION [None]
